FAERS Safety Report 25669409 (Version 2)
Quarter: 2025Q3

REPORT INFORMATION
  Report Type: Spontaneous
  Country: BR (occurrence: BR)
  Receive Date: 20250812
  Receipt Date: 20250829
  Transmission Date: 20251021
  Serious: Yes (Hospitalization, Other)
  Sender: SENTYNL THERAPEUTICS
  Company Number: BR-Sentynl-20250071

PATIENT
  Age: 4 Year
  Sex: Female

DRUGS (1)
  1. LONAFARNIB [Suspect]
     Active Substance: LONAFARNIB
     Dates: start: 20240429, end: 20250718

REACTIONS (1)
  - Bronchiolitis [Recovered/Resolved]

NARRATIVE: CASE EVENT DATE: 20250716
